FAERS Safety Report 4649548-5 (Version None)
Quarter: 2005Q2

REPORT INFORMATION
  Report Type: 
  Country: None (occurrence: None)
  Receive Date: 20050502
  Receipt Date: 20050427
  Transmission Date: 20051028
  Serious: Yes (Hospitalization)
  Sender: FDA-Public Use
  Company Number: PHBS2005NZ06107

PATIENT
  Sex: Male

DRUGS (1)
  1. CLOZARIL [Suspect]
     Dosage: 300 MG/D
     Route: 048

REACTIONS (3)
  - APPENDICECTOMY [None]
  - CONSTIPATION [None]
  - SMALL INTESTINAL OBSTRUCTION [None]
